FAERS Safety Report 16860237 (Version 1)
Quarter: 2019Q3

REPORT INFORMATION
  Report Type: Spontaneous
  Country: US (occurrence: US)
  Receive Date: 20190927
  Receipt Date: 20190927
  Transmission Date: 20191005
  Serious: Yes (Other)
  Sender: FDA-Public Use
  Company Number: US-ROCHE-2397234

PATIENT
  Sex: Female
  Weight: 56.75 kg

DRUGS (3)
  1. VALIUM [Suspect]
     Active Substance: DIAZEPAM
     Indication: HEART RATE INCREASED
     Route: 065
  2. METOPROLOL. [Concomitant]
     Active Substance: METOPROLOL
  3. ELIQUIS [Concomitant]
     Active Substance: APIXABAN
     Dosage: START DATE: 30/AUG/2019
     Route: 065

REACTIONS (4)
  - Atrial fibrillation [Not Recovered/Not Resolved]
  - Abdominal discomfort [Recovered/Resolved]
  - Off label use [Unknown]
  - Stupor [Not Recovered/Not Resolved]

NARRATIVE: CASE EVENT DATE: 2013
